FAERS Safety Report 11314283 (Version 1)
Quarter: 2015Q3

REPORT INFORMATION
  Report Type: Spontaneous
  Country: US (occurrence: US)
  Receive Date: 20150727
  Receipt Date: 20150727
  Transmission Date: 20151125
  Serious: No
  Sender: FDA-Public Use
  Company Number: US-GALDERMA-US14003122

PATIENT
  Age: 13 Year
  Sex: Female

DRUGS (1)
  1. DIFFERIN [Suspect]
     Active Substance: ADAPALENE
     Indication: ACNE
     Dosage: 0.1%
     Dates: start: 20140814, end: 20140815

REACTIONS (8)
  - Rash maculo-papular [Not Recovered/Not Resolved]
  - Skin burning sensation [Recovering/Resolving]
  - Eyelid oedema [Recovering/Resolving]
  - Swelling face [Recovering/Resolving]
  - Erythema [Recovering/Resolving]
  - Dry skin [Not Recovered/Not Resolved]
  - Erythema of eyelid [Recovering/Resolving]
  - Pruritus [Recovering/Resolving]
